FAERS Safety Report 21588326 (Version 10)
Quarter: 2023Q4

REPORT INFORMATION
  Report Type: Spontaneous
  Country: US (occurrence: US)
  Receive Date: 20221114
  Receipt Date: 20231009
  Transmission Date: 20240109
  Serious: Yes (Other)
  Sender: FDA-Public Use
  Company Number: US-UCBSA-2022052322

PATIENT
  Sex: Female
  Weight: 97.506 kg

DRUGS (5)
  1. CIMZIA [Suspect]
     Active Substance: CERTOLIZUMAB PEGOL
     Indication: Rheumatoid arthritis
     Dosage: 200 MILLIGRAM, EV 2 WEEKS(QOW)
     Route: 058
     Dates: start: 202206, end: 2022
  2. CIMZIA [Suspect]
     Active Substance: CERTOLIZUMAB PEGOL
     Dosage: 200 MILLIGRAM, EV 2 WEEKS(QOW)
     Route: 058
  3. GABAPENTIN [Concomitant]
     Active Substance: GABAPENTIN
     Indication: Product used for unknown indication
     Dosage: UNK
  4. COVID-19 VACCINE [Concomitant]
     Indication: Product used for unknown indication
     Dosage: UNK
  5. PRAVASTATIN [Concomitant]
     Active Substance: PRAVASTATIN
     Indication: Product used for unknown indication
     Dosage: UNK

REACTIONS (15)
  - Gallbladder disorder [Unknown]
  - Renal disorder [Unknown]
  - Injection site bruising [Unknown]
  - Back pain [Unknown]
  - Hypertension [Unknown]
  - Injection site erythema [Unknown]
  - Bladder pain [Unknown]
  - Nasopharyngitis [Unknown]
  - COVID-19 immunisation [Unknown]
  - Infection [Unknown]
  - Antibiotic therapy [Unknown]
  - Drug ineffective [Unknown]
  - Therapy interrupted [Unknown]
  - Product dose omission in error [Unknown]
  - Intentional dose omission [Unknown]

NARRATIVE: CASE EVENT DATE: 20220101
